FAERS Safety Report 9999273 (Version 3)
Quarter: 2014Q2

REPORT INFORMATION
  Report Type: Report from Study
  Country: JP (occurrence: JP)
  Receive Date: 20140312
  Receipt Date: 20140421
  Transmission Date: 20141212
  Serious: Yes (Hospitalization, Other)
  Sender: FDA-Public Use
  Company Number: JP-ASTELLAS-2014JP002075

PATIENT
  Age: 83 Year
  Sex: Male

DRUGS (4)
  1. MIRABEGRON [Suspect]
     Indication: HYPERTONIC BLADDER
     Route: 048
     Dates: start: 20130212
  2. MIRABEGRON [Suspect]
     Route: 048
     Dates: start: 2014
  3. HARNAL [Concomitant]
     Indication: BENIGN PROSTATIC HYPERPLASIA
     Dosage: 0.2 MG, UNKNOWN FREQ.
     Route: 048
  4. AVOLVE [Concomitant]
     Indication: BENIGN PROSTATIC HYPERPLASIA
     Dosage: 0.5 MG, ONCE DAILY
     Route: 048

REACTIONS (2)
  - Compression fracture [Recovering/Resolving]
  - Osteoporosis [Recovering/Resolving]
